FAERS Safety Report 8248225-1 (Version None)
Quarter: 2012Q1

REPORT INFORMATION
  Report Type: 
  Country: None (occurrence: None)
  Receive Date: 20120330
  Receipt Date: 20120326
  Transmission Date: 20120608
  Serious: Yes (Hospitalization, Congenital Anomaly, Other)
  Sender: FDA-Public Use
  Company Number: DE-PFIZER INC-2012076951

PATIENT
  Sex: Male
  Weight: 2.3 kg

DRUGS (3)
  1. SULFASALAZINE [Suspect]
     Indication: COLITIS ULCERATIVE
     Dosage: TRIMESTER: LONG TERM EXPOSURE
     Route: 064
  2. PREDNISONE TAB [Suspect]
     Indication: COLITIS ULCERATIVE
     Dosage: 5 MG, 1X/DAY, 0.-36. GESTATIONAL WEEK
     Route: 064
  3. AZATHIOPRINE [Suspect]
     Indication: COLITIS ULCERATIVE
     Dosage: 150 MG, 1X/DAY, 0.-36. GESTATIONAL WEEK
     Route: 064

REACTIONS (5)
  - ATRIAL SEPTAL DEFECT [None]
  - SMALL FOR DATES BABY [None]
  - CONGENITAL TRICUSPID VALVE INCOMPETENCE [None]
  - NEUTROPENIA NEONATAL [None]
  - MATERNAL EXPOSURE TIMING UNSPECIFIED [None]
